FAERS Safety Report 6490847-2 (Version None)
Quarter: 2009Q4

REPORT INFORMATION
  Report Type: 
  Country: None (occurrence: None)
  Receive Date: 20091211
  Receipt Date: 20091130
  Transmission Date: 20100525
  Serious: Yes (Other)
  Sender: FDA-Public Use
  Company Number: US-JNJFOC-20091200535

PATIENT
  Sex: Female

DRUGS (9)
  1. NUCYNTA [Suspect]
     Indication: BACK PAIN
     Route: 048
  2. GABAPENTIN [Concomitant]
     Indication: RESTLESS LEGS SYNDROME
  3. DIPHENOXYLATE AND ATROPINE [Concomitant]
     Indication: COLITIS
  4. ASACOL [Concomitant]
     Indication: COLITIS
  5. DILTIAZEM [Concomitant]
     Indication: BLOOD PRESSURE
  6. FORTEO [Concomitant]
     Indication: OSTEOPOROSIS
  7. CLONAZEPAM [Concomitant]
  8. CHOLESTYRAMINE [Concomitant]
     Indication: DIARRHOEA
  9. NITROGLYCERIN [Concomitant]
     Indication: ANGINA PECTORIS
     Route: 048

REACTIONS (2)
  - ABNORMAL DREAMS [None]
  - HALLUCINATION [None]
